FAERS Safety Report 9769880 (Version 1)
Quarter: 2013Q4

REPORT INFORMATION
  Report Type: Spontaneous
  Country: US (occurrence: US)
  Receive Date: 20131218
  Receipt Date: 20131218
  Transmission Date: 20140711
  Serious: No
  Sender: FDA-Public Use
  Company Number: US-VERTEX PHARMACEUTICALS INC-AE-2011-000689

PATIENT
  Age: 56 Year
  Sex: Male
  Weight: 117.73 kg

DRUGS (10)
  1. INCIVEK [Suspect]
     Indication: HEPATITIS C
     Dates: start: 20110730
  2. PEGASYS [Concomitant]
     Indication: HEPATITIS C
     Dates: start: 20110730
  3. RIBAPAK [Concomitant]
     Indication: HEPATITIS C
     Dates: start: 20110730
  4. METOPROLOL [Concomitant]
     Indication: HYPERTENSION
     Dates: start: 2009
  5. LEXAPRO [Concomitant]
     Indication: PROPHYLAXIS
     Dates: start: 2009
  6. URSODIOL [Concomitant]
     Indication: SUPPLEMENTATION THERAPY
     Dates: start: 20110601
  7. SPIRONOLACTONE [Concomitant]
     Indication: DIURETIC THERAPY
     Dates: start: 20110601
  8. NITRO PATCH [Concomitant]
     Indication: HYPERTENSION
     Dates: start: 20110601
  9. LASIX [Concomitant]
     Indication: POLYURIA
     Dates: start: 2009
  10. DEXILANT [Concomitant]
     Indication: ABDOMINAL DISCOMFORT
     Dates: start: 2009

REACTIONS (2)
  - Pyrexia [Not Recovered/Not Resolved]
  - Delirium [Not Recovered/Not Resolved]
